FAERS Safety Report 6634327-X (Version None)
Quarter: 2010Q1

REPORT INFORMATION
  Report Type: 
  Country: None (occurrence: None)
  Receive Date: 20100315
  Receipt Date: 20100309
  Transmission Date: 20100710
  Serious: Yes (Death)
  Sender: FDA-Public Use
  Company Number: SG-SANOFI-AVENTIS-2010SA013359

PATIENT

DRUGS (2)
  1. GLIBENCLAMIDE [Suspect]
  2. SILDENAFIL CITRATE [Suspect]

REACTIONS (1)
  - HYPOGLYCAEMIA [None]
